FAERS Safety Report 9127152 (Version 3)
Quarter: 2013Q2

REPORT INFORMATION
  Report Type: Report from Study
  Country: US (occurrence: US)
  Receive Date: 20130228
  Receipt Date: 20130409
  Transmission Date: 20140414
  Serious: Yes (Hospitalization)
  Sender: FDA-Public Use
  Company Number: US-JNJFOC-20130213830

PATIENT
  Age: 17 Year
  Sex: Male
  Weight: 89.5 kg

DRUGS (1)
  1. REMICADE [Suspect]
     Indication: INFLAMMATORY BOWEL DISEASE
     Route: 042
     Dates: start: 200811

REACTIONS (1)
  - Perirectal abscess [Recovered/Resolved with Sequelae]
